FAERS Safety Report 6913547-0 (Version None)
Quarter: 2010Q3

REPORT INFORMATION
  Report Type: 
  Country: None (occurrence: None)
  Receive Date: 20100809
  Receipt Date: 20100726
  Transmission Date: 20110219
  Serious: Yes (Hospitalization, Other)
  Sender: FDA-Public Use
  Company Number: US-ELI_LILLY_AND_COMPANY-US201005004572

PATIENT
  Sex: Female

DRUGS (46)
  1. FORTEO [Suspect]
     Indication: OSTEOPOROSIS
     Dosage: 20 UG, DAILY (1/D)
     Dates: start: 20100101
  2. ZYPREXA [Suspect]
     Dosage: 1/2 TABLET
  3. ZYPREXA [Suspect]
     Dosage: 1 TABLET EVERY 6 HRS AS NEEDED
  4. ZYPREXA [Suspect]
     Dosage: 0.75 MG, 2/D
  5. ZYPREXA [Suspect]
     Dosage: 5 MG, AS NEEDED
  6. ZYPREXA [Suspect]
     Dosage: 5 MG, EACH MORNING
  7. ZYPREXA [Suspect]
     Dosage: 7.5 MG, EACH EVENING
  8. LOPRESSOR [Concomitant]
     Dosage: 25 MG, 2/D
  9. LASIX [Concomitant]
     Dosage: 40 MG, 3/W
  10. LASIX [Concomitant]
     Dosage: 80 MG, 4/W
  11. COZAAR [Concomitant]
     Dosage: 50 MG, 2/D
  12. PREDNISONE [Concomitant]
     Dosage: 9 MG, DAILY (1/D)
  13. ASPIRIN [Concomitant]
     Dosage: 81 MG, DAILY (1/D)
  14. ZOCOR [Concomitant]
     Dosage: 20 MG, DAILY (1/D)
  15. SENOKOT [Concomitant]
     Dosage: 25.8 MG, 2/D
  16. FIBERCON [Concomitant]
     Dosage: 1250 MG, 2/D
  17. CALCIUM CITRATE W/VITAMIN D NOS [Concomitant]
     Dosage: 1 D/F, 4/D
  18. CALCIUM CITRATE W/VITAMIN D NOS [Concomitant]
     Dosage: 2 D/F, 2/D
  19. TYLENOL-500 [Concomitant]
     Dosage: 2 D/F, 3/D
  20. MS CONTIN [Concomitant]
     Dosage: 30 MG, 2/D
  21. MORPHINE SULFATE [Concomitant]
     Dosage: 7.5 MG, AS NEEDED
  22. PRIALTA [Concomitant]
  23. LIDODERM [Concomitant]
  24. NORTRIPTYLINE [Concomitant]
     Dosage: 75 MG, DAILY (1/D)
  25. XANAX [Concomitant]
     Dosage: 0.5 MG, 4/D
  26. PRILOSEC [Concomitant]
     Dosage: 20 MG, DAILY (1/D)
  27. CENTRUM SILVER [Concomitant]
     Dosage: UNK, DAILY (1/D)
  28. SYSTANE [Concomitant]
     Dosage: UNK, EACH EVENING
  29. NOVOLOG [Concomitant]
     Dosage: 16 U, EACH MORNING
  30. NOVOLOG [Concomitant]
     Dosage: 12 U, DAILY (1/D)
  31. NOVOLOG [Concomitant]
     Dosage: 16 U, EACH EVENING
  32. NOVOLOG [Concomitant]
     Dosage: 18 U, EACH MORNING
  33. NOVOLOG [Concomitant]
     Dosage: 10 U, EACH EVENING
  34. LANTUS [Concomitant]
     Dosage: 40 U, EACH EVENING
  35. GUAIFENESIN [Concomitant]
     Indication: NASAL CONGESTION
     Dosage: 200 MG, AS NEEDED
  36. SODIUM CHLORIDE [Concomitant]
     Dosage: UNK, AS NEEDED
  37. LOSARTAN POSTASSIUM [Concomitant]
     Dosage: 50 MG, 2/D
  38. OCULAR LUBRICANT                   /00445101/ [Concomitant]
     Dosage: UNK, EACH EVENING
  39. SENNA [Concomitant]
     Dosage: 25.8 MG, 2/D
  40. SIMVASTATIN [Concomitant]
     Dosage: 20 MG, EACH EVENING
  41. OMEPRAZOLE [Concomitant]
     Dosage: 20 MG, EACH MORNING
  42. COMBIVENT [Concomitant]
     Dosage: 2 D/F, 3/D
  43. LACTULOSE [Concomitant]
     Dosage: 30 ML, DAILY (1/D)
  44. DULCOLAX [Concomitant]
     Indication: CONSTIPATION
     Dosage: 10 MG, AS NEEDED
  45. LIDOCAINE [Concomitant]
     Dosage: UNK, DAILY (1/D)
  46. ANUSOL HC [Concomitant]
     Dosage: UNK, AS NEEDED

REACTIONS (5)
  - ANXIETY [None]
  - DEPRESSION [None]
  - OFF LABEL USE [None]
  - PICKWICKIAN SYNDROME [None]
  - TRACHEOBRONCHITIS VIRAL [None]
